FAERS Safety Report 14294957 (Version 1)
Quarter: 2017Q4

REPORT INFORMATION
  Report Type: Report from Study
  Country: None (occurrence: BR)
  Receive Date: 20171218
  Receipt Date: 20171218
  Transmission Date: 20180321
  Serious: Yes (Death, Other)
  Sender: FDA-Public Use
  Company Number: BR-ABBVIE-17K-020-2195747-00

PATIENT
  Age: 29 Year
  Sex: Male
  Weight: 65 kg

DRUGS (1)
  1. HUMIRA [Suspect]
     Active Substance: ADALIMUMAB
     Indication: ANKYLOSING SPONDYLITIS
     Route: 058
     Dates: start: 20140101, end: 201704

REACTIONS (15)
  - Renal disorder [Unknown]
  - Pollakiuria [Unknown]
  - Lung neoplasm malignant [Fatal]
  - Chest wall tumour [Fatal]
  - Constipation [Not Recovered/Not Resolved]
  - Gastritis [Not Recovered/Not Resolved]
  - Erythema [Not Recovered/Not Resolved]
  - Adverse event [Not Recovered/Not Resolved]
  - Drug effect decreased [Unknown]
  - Intestinal mass [Not Recovered/Not Resolved]
  - Abdominal distension [Not Recovered/Not Resolved]
  - Renal pain [Unknown]
  - Pancreatic carcinoma [Fatal]
  - Spinal pain [Not Recovered/Not Resolved]
  - Malignant splenic neoplasm [Fatal]

NARRATIVE: CASE EVENT DATE: 201704
